FAERS Safety Report 18111155 (Version 1)
Quarter: 2020Q3

REPORT INFORMATION
  Report Type: Spontaneous
  Country: DE (occurrence: DE)
  Receive Date: 20200805
  Receipt Date: 20200805
  Transmission Date: 20201103
  Serious: Yes (Other)
  Sender: FDA-Public Use
  Company Number: DE-JNJFOC-20200742633

PATIENT
  Age: 54 Year
  Sex: Female

DRUGS (11)
  1. VENLAFAXIN ARISTO [Concomitant]
     Indication: PRODUCT USED FOR UNKNOWN INDICATION
     Dosage: PERMANENT MEDICATION?ADDITIONAL INFO: PZN 11584659
     Route: 048
  2. IPRATROPIUM TEVA [Concomitant]
     Indication: PRODUCT USED FOR UNKNOWN INDICATION
     Dosage: PERMANENT MEDICATION.?ADDITIONAL INFO: PZN 00668732
     Route: 055
  3. JARDIANCE [Concomitant]
     Active Substance: EMPAGLIFLOZIN
     Indication: PRODUCT USED FOR UNKNOWN INDICATION
     Dosage: PERMANENT MEDICATION?ADDITIONAL INFO: PZN 10262072
     Route: 048
  4. PROTAPHANE [Concomitant]
     Active Substance: INSULIN HUMAN
     Indication: PRODUCT USED FOR UNKNOWN INDICATION
     Dosage: PERMANENT MEDICATION?ADDITIONAL INFO: PZN 00546578
     Route: 058
  5. LATANOPROST PFIZER [Concomitant]
     Active Substance: LATANOPROST
     Indication: PRODUCT USED FOR UNKNOWN INDICATION
     Dosage: PERMANENT MEDICATION?ADDITIONAL INFO: PZN 09097260
     Route: 047
  6. AMLODIPINE BESILATE W/VALSARTAN [Concomitant]
     Active Substance: AMLODIPINE BESYLATE\VALSARTAN
     Indication: PRODUCT USED FOR UNKNOWN INDICATION
     Dosage: PERMANENT MEDICATION?ADDITIONAL INFO: PZN 15639481
     Route: 048
  7. TRIMIPRAMIN?NEURAXPHARM [Concomitant]
     Active Substance: TRIMIPRAMINE MALEATE
     Indication: PRODUCT USED FOR UNKNOWN INDICATION
     Dosage: PERMANENT MEDICATION?ADDITIONAL INFO: PZN 01527620
     Route: 048
  8. TIOBLIS [Concomitant]
     Active Substance: ATORVASTATIN CALCIUM\EZETIMIBE
     Indication: PRODUCT USED FOR UNKNOWN INDICATION
     Dosage: ADDITIONAL INFO: PZN 11119721 PERMANENT MEDICATION
     Route: 048
  9. REGAINE WOMEN 5% FOAM [Suspect]
     Active Substance: MINOXIDIL
     Indication: ALOPECIA
     Dosage: 1/2 CAP ONCE DAILY ADMINISTERED ON SCALP?ADDITIONAL INFO: PZN 11082202
     Route: 003
     Dates: start: 20200410, end: 20200418
  10. NEBIVOLOL GLENMARK [Concomitant]
     Indication: PRODUCT USED FOR UNKNOWN INDICATION
     Dosage: PERMANENT MEDICATION?ADDITIONAL INFO: PZN 09098377
     Route: 048
  11. NIFEDIPIN [Concomitant]
     Active Substance: NIFEDIPINE
     Indication: PRODUCT USED FOR UNKNOWN INDICATION
     Dosage: PERMANENT MEDICATION (IF NECESSARY)?ADDITIONAL INFO: PZN 04748416
     Route: 065

REACTIONS (3)
  - Heart rate increased [Recovered/Resolved]
  - Heart rate irregular [Recovered/Resolved]
  - Arrhythmia [Recovered/Resolved]

NARRATIVE: CASE EVENT DATE: 202004
